FAERS Safety Report 6617987-9 (Version None)
Quarter: 2010Q1

REPORT INFORMATION
  Report Type: 
  Country: None (occurrence: None)
  Receive Date: 20100308
  Receipt Date: 20100303
  Transmission Date: 20100710
  Serious: Yes (Death, Hospitalization, Other)
  Sender: FDA-Public Use
  Company Number: BR-ASTRAZENECA-2010SE09410

PATIENT
  Age: 87 Year
  Sex: Male
  Weight: 60 kg

DRUGS (17)
  1. NEXIUM [Suspect]
     Indication: HIATUS HERNIA
     Route: 048
     Dates: start: 20080801
  2. NEXIUM [Suspect]
     Indication: GASTRIC DISORDER
     Route: 048
     Dates: start: 20080801
  3. NEXIUM [Suspect]
     Route: 048
     Dates: end: 20090801
  4. NEXIUM [Suspect]
     Route: 048
     Dates: end: 20090801
  5. OMEPRAZOLE [Suspect]
     Indication: GASTRIC DISORDER
     Dosage: OD
     Route: 048
     Dates: start: 20080101, end: 20080501
  6. UNKNOWN [Suspect]
     Indication: ANTICOAGULANT THERAPY
     Route: 065
  7. LOSARTANA [Concomitant]
     Indication: HYPERTENSION
     Dosage: TID
     Route: 048
     Dates: start: 20060401, end: 20090801
  8. INSULIN [Concomitant]
     Indication: DIABETES MELLITUS
     Dosage: OD
     Route: 058
     Dates: start: 20080101, end: 20090801
  9. LEVEMIR [Concomitant]
     Indication: DIABETES MELLITUS
     Dosage: OD
     Route: 058
     Dates: start: 20080101, end: 20090801
  10. FRONTAL [Concomitant]
     Indication: INSOMNIA
     Dosage: TID
     Route: 048
     Dates: start: 20060401, end: 20090801
  11. CODEX [Concomitant]
     Indication: ANALGESIC THERAPY
     Dosage: BID
     Route: 048
     Dates: start: 20060401, end: 20090801
  12. MOTILIUM [Concomitant]
     Indication: GASTRIC DISORDER
     Dosage: OD
     Route: 048
     Dates: start: 20060401, end: 20090801
  13. RISPERDAL [Concomitant]
     Indication: SEDATIVE THERAPY
     Dosage: OD
     Route: 048
     Dates: start: 20080801, end: 20090801
  14. TAMARINE [Concomitant]
     Indication: INTESTINAL FUNCTIONAL DISORDER
     Dosage: OD
     Route: 048
     Dates: start: 20060401, end: 20090801
  15. LUFTAL [Concomitant]
     Indication: FLATULENCE
     Dosage: OD
     Route: 048
     Dates: start: 20060401, end: 20090801
  16. VASTAREL [Concomitant]
     Indication: ARTERIAL OCCLUSIVE DISEASE
     Dosage: BID
     Route: 048
     Dates: start: 20060401, end: 20090801
  17. RUBRANOVA [Concomitant]
     Indication: PAIN IN EXTREMITY
     Dosage: WEEKLY
     Route: 030
     Dates: start: 20090101, end: 20090101

REACTIONS (3)
  - GASTRIC HAEMORRHAGE [None]
  - HYPOTENSION [None]
  - LUNG INFECTION [None]
